APPROVED DRUG PRODUCT: COUMADIN
Active Ingredient: WARFARIN SODIUM
Strength: 1MG **Federal Register determination that product was not discontinued or withdrawn for safety or effectiveness reasons**
Dosage Form/Route: TABLET;ORAL
Application: N009218 | Product #022
Applicant: BRISTOL MYERS SQUIBB PHARMA CO
Approved: Mar 1, 1990 | RLD: Yes | RS: No | Type: DISCN